FAERS Safety Report 8252727-1 (Version None)
Quarter: 2012Q2

REPORT INFORMATION
  Report Type: 
  Country: None (occurrence: None)
  Receive Date: 20120402
  Receipt Date: 20111215
  Transmission Date: 20120825
  Serious: Yes (Other)
  Sender: FDA-Public Use
  Company Number: US-ABBOTT-11P-163-0880976-00

PATIENT
  Sex: Male
  Weight: 84.444 kg

DRUGS (1)
  1. ANDROGEL [Suspect]
     Indication: BLOOD TESTOSTERONE DECREASED
     Dosage: ONE PACKET PER DAY
     Dates: start: 20020101

REACTIONS (2)
  - BALANCE DISORDER [None]
  - PROSTATE CANCER [None]
